FAERS Safety Report 10672223 (Version 2)
Quarter: 2014Q4

REPORT INFORMATION
  Report Type: Report from Study
  Country: GB (occurrence: GB)
  Receive Date: 20141223
  Receipt Date: 20141223
  Transmission Date: 20150529
  Serious: Yes (Hospitalization)
  Sender: FDA-Public Use
  Company Number: GB-NOVOPROD-426100

PATIENT
  Sex: Female
  Weight: 3.9 kg

DRUGS (15)
  1. ASPIRIN                            /00002701/ [Concomitant]
     Active Substance: ASPIRIN
     Indication: PROPHYLAXIS
     Dosage: UNK
     Dates: start: 20140121
  2. INSULIN DETEMIR 2.4 MMOL/L [Suspect]
     Active Substance: INSULIN DETEMIR
     Dosage: 50.0 U, QD
     Route: 064
     Dates: start: 20140506
  3. NOVORAPID [Suspect]
     Active Substance: INSULIN ASPART
     Dosage: 18.0 U, QD
     Route: 064
     Dates: start: 20140204
  4. NOVORAPID [Suspect]
     Active Substance: INSULIN ASPART
     Dosage: 49 U, QD
     Route: 064
     Dates: start: 20140603
  5. FOLIC ACID. [Concomitant]
     Active Substance: FOLIC ACID
     Indication: PROPHYLAXIS
     Dosage: UNK
     Dates: start: 20130320
  6. VITAMIN D                          /00107901/ [Concomitant]
     Active Substance: ERGOCALCIFEROL
     Indication: PROPHYLAXIS
     Dosage: UNK
  7. INSULIN DETEMIR 2.4 MMOL/L [Suspect]
     Active Substance: INSULIN DETEMIR
     Dosage: 42.0 U, QD
     Route: 064
     Dates: start: 20140204
  8. NOVORAPID [Suspect]
     Active Substance: INSULIN ASPART
     Dosage: 29.0 U, QD
     Route: 064
     Dates: start: 20140304
  9. INSULIN DETEMIR 2.4 MMOL/L [Suspect]
     Active Substance: INSULIN DETEMIR
     Dosage: 40.0 U, QD
     Route: 064
     Dates: start: 20140304
  10. NOVORAPID [Suspect]
     Active Substance: INSULIN ASPART
     Dosage: 24.0 U, QD
     Route: 064
     Dates: start: 20140506
  11. INSULIN DETEMIR 2.4 MMOL/L [Suspect]
     Active Substance: INSULIN DETEMIR
     Indication: TYPE 1 DIABETES MELLITUS
     Dosage: 42.0 U, QD
     Route: 064
     Dates: start: 20120719
  12. INSULIN DETEMIR 2.4 MMOL/L [Suspect]
     Active Substance: INSULIN DETEMIR
     Dosage: 65.0 U, QD
     Route: 064
     Dates: start: 20140603
  13. INSULIN DETEMIR 2.4 MMOL/L [Suspect]
     Active Substance: INSULIN DETEMIR
     Dosage: 73 U, QD
     Route: 064
     Dates: start: 20140701, end: 20140731
  14. NOVORAPID [Suspect]
     Active Substance: INSULIN ASPART
     Indication: TYPE 1 DIABETES MELLITUS
     Dosage: 18.0 U, QD
     Route: 064
     Dates: start: 20110314
  15. NOVORAPID [Suspect]
     Active Substance: INSULIN ASPART
     Dosage: 66.0 U, QD
     Route: 064
     Dates: start: 20140701, end: 20140731

REACTIONS (6)
  - Hypoglycaemia neonatal [Recovered/Resolved]
  - Foetal exposure during pregnancy [Recovered/Resolved]
  - Neonatal respiratory distress syndrome [Recovered/Resolved]
  - Premature baby [Unknown]
  - Jaundice neonatal [Recovered/Resolved]
  - Foetal hypokinesia [Recovered/Resolved]

NARRATIVE: CASE EVENT DATE: 201407
